FAERS Safety Report 21958996 (Version 14)
Quarter: 2024Q1

REPORT INFORMATION
  Report Type: Spontaneous
  Country: US (occurrence: US)
  Receive Date: 20230206
  Receipt Date: 20240209
  Transmission Date: 20240409
  Serious: Yes (Other)
  Sender: FDA-Public Use
  Company Number: US-PFIZER INC-PV202300022253

PATIENT
  Age: 71 Year
  Sex: Female
  Weight: 63.5 kg

DRUGS (3)
  1. IBRANCE [Suspect]
     Active Substance: PALBOCICLIB
     Indication: Inflammatory carcinoma of the breast
     Dosage: 100 MG, CYCLIC (ONCE DAILY, 21 DAYS ON AND 7 DAYS OFF, OF A 28-DAY CYCLE)
     Route: 048
     Dates: start: 202204
  2. LETROZOLE [Concomitant]
     Active Substance: LETROZOLE
     Dosage: UNK
  3. ANASTROZOLE [Concomitant]
     Active Substance: ANASTROZOLE
     Indication: Disease progression
     Dosage: 1 MG, CYCLIC (DAILY REPEATED EVERY 21 DAYS/1 MG DAILY REPEATED EVERY 28 DAYS)
     Dates: start: 20190729

REACTIONS (11)
  - Neutropenia [Unknown]
  - Neoplasm progression [Unknown]
  - Neoplasm recurrence [Unknown]
  - Erythema [Recovering/Resolving]
  - Fatigue [Unknown]
  - Lymphoedema [Unknown]
  - Anaemia [Unknown]
  - Appetite disorder [Recovering/Resolving]
  - Asthenia [Recovering/Resolving]
  - Nipple pain [Recovering/Resolving]
  - Breast pain [Recovered/Resolved]

NARRATIVE: CASE EVENT DATE: 20230601
